FAERS Safety Report 20959531 (Version 2)
Quarter: 2022Q2

REPORT INFORMATION
  Report Type: Spontaneous
  Country: JP (occurrence: JP)
  Receive Date: 20220614
  Receipt Date: 20220617
  Transmission Date: 20220721
  Serious: Yes (Other)
  Sender: FDA-Public Use
  Company Number: JP-UCBSA-2022033764

PATIENT
  Sex: Male

DRUGS (1)
  1. LEVETIRACETAM [Suspect]
     Active Substance: LEVETIRACETAM
     Indication: Generalised tonic-clonic seizure
     Dosage: UNK
     Route: 048

REACTIONS (4)
  - Epilepsy with myoclonic-atonic seizures [Unknown]
  - Focal dyscognitive seizures [Unknown]
  - Status epilepticus [Unknown]
  - Off label use [Unknown]
